FAERS Safety Report 21757401 (Version 1)
Quarter: 2022Q4

REPORT INFORMATION
  Report Type: Spontaneous
  Country: US (occurrence: US)
  Receive Date: 20221220
  Receipt Date: 20221220
  Transmission Date: 20230113
  Serious: Yes (Life-Threatening, Other)
  Sender: FDA-Public Use
  Company Number: US-BIOGEN-2022BI01176026

PATIENT
  Age: 57 Year
  Sex: Female

DRUGS (1)
  1. TECFIDERA [Suspect]
     Active Substance: DIMETHYL FUMARATE
     Indication: Product used for unknown indication
     Route: 050

REACTIONS (21)
  - Near death experience [Unknown]
  - Breast cancer female [Unknown]
  - Fatigue [Unknown]
  - Radiation injury [Unknown]
  - Hypertension [Unknown]
  - Blood cholesterol increased [Unknown]
  - Heart rate increased [Unknown]
  - Sleep disorder [Unknown]
  - Eczema [Unknown]
  - Urinary retention [Unknown]
  - Musculoskeletal disorder [Unknown]
  - Back disorder [Unknown]
  - Headache [Unknown]
  - Neuralgia [Unknown]
  - Vitamin D decreased [Unknown]
  - Osteoporosis [Unknown]
  - Seasonal allergy [Unknown]
  - Rheumatoid arthritis [Unknown]
  - Fibromyalgia [Unknown]
  - Diarrhoea [Unknown]
  - Herpes zoster [Unknown]

NARRATIVE: CASE EVENT DATE: 20220523
